FAERS Safety Report 23290448 (Version 1)
Quarter: 2023Q4

REPORT INFORMATION
  Report Type: Other
  Country: US (occurrence: None)
  Receive Date: 20231213
  Receipt Date: 20231213
  Transmission Date: 20240110
  Serious: No
  Sender: FDA-Public Use
  Company Number: US-ROCHE-3474206

PATIENT
  Age: 29 Year
  Sex: Female

DRUGS (1)
  1. OCREVUS [Suspect]
     Active Substance: OCRELIZUMAB
     Indication: Relapsing multiple sclerosis
     Dosage: THEN 600 MG IV EVERY 6 MONTHS. DATE OF TREATMENT: 25/NOV/2022 AND ANTICIPATED DATE OF TREATMENT: 25/
     Route: 042
     Dates: start: 20200904

REACTIONS (6)
  - COVID-19 [Recovered/Resolved]
  - Sinusitis [Recovered/Resolved]
  - Pain [Recovered/Resolved]
  - Bone pain [Recovered/Resolved]
  - Ageusia [Recovered/Resolved]
  - Anosmia [Recovered/Resolved]

NARRATIVE: CASE EVENT DATE: 20231119
